FAERS Safety Report 5215566-1 (Version None)
Quarter: 2007Q1

REPORT INFORMATION
  Report Type: 
  Country: None (occurrence: None)
  Receive Date: 20070117
  Receipt Date: 20070108
  Transmission Date: 20070707
  Serious: Yes (Other)
  Sender: FDA-Public Use
  Company Number: 2007302431

PATIENT
  Age: 70 Year
  Sex: Female

DRUGS (9)
  1. MINOXIDIL [Suspect]
     Indication: ALOPECIA
     Dosage: 1 ML MORNING AND EVENING (1 ML, 2 IN 1 D), TOPICAL
     Route: 061
     Dates: start: 20060101, end: 20070101
  2. BIOTIN [Concomitant]
  3. FERROUS SULFATE TAB [Concomitant]
  4. SELENIUM (SELENIUM) [Concomitant]
  5. PLAVIX [Concomitant]
  6. PERINDOPRIL ERBUMINE [Concomitant]
  7. OMEGA 3 (FISH OIL) [Concomitant]
  8. CRESTOR [Concomitant]
  9. VERAPAMIL [Concomitant]

REACTIONS (4)
  - APPLICATION SITE PRURITUS [None]
  - HAIR TEXTURE ABNORMAL [None]
  - PRURITUS [None]
  - RENAL COLIC [None]
